FAERS Safety Report 7646634-2 (Version None)
Quarter: 2011Q3

REPORT INFORMATION
  Report Type: 
  Country: None (occurrence: None)
  Receive Date: 20110725
  Receipt Date: 20110712
  Transmission Date: 20111222
  Serious: Yes (Death)
  Sender: FDA-Public Use
  Company Number: B0733838A

PATIENT
  Age: 63 Year
  Sex: Male

DRUGS (1)
  1. MELPHALAN HYDROCHLORIDE [Suspect]
     Indication: MALIGNANT MELANOMA

REACTIONS (4)
  - MULTI-ORGAN FAILURE [None]
  - LOCAL REACTION [None]
  - SEPTIC SHOCK [None]
  - BONE MARROW TOXICITY [None]
